FAERS Safety Report 17860225 (Version 1)
Quarter: 2020Q2

REPORT INFORMATION
  Report Type: Spontaneous
  Country: CN (occurrence: CN)
  Receive Date: 20200604
  Receipt Date: 20200604
  Transmission Date: 20200714
  Serious: Yes (Hospitalization, Other)
  Sender: FDA-Public Use
  Company Number: CN-SA-2020SA135874

PATIENT
  Age: 54 Year
  Sex: Male

DRUGS (1)
  1. TERIFLUNOMIDE. [Suspect]
     Active Substance: TERIFLUNOMIDE
     Indication: MULTIPLE SCLEROSIS
     Dosage: 14 MG, QD
     Route: 048
     Dates: start: 201907, end: 202003

REACTIONS (8)
  - Hypoaesthesia [Recovering/Resolving]
  - Hyperlipidaemia [Recovered/Resolved]
  - Pneumonitis [Recovered/Resolved]
  - Hypoproteinaemia [Recovered/Resolved]
  - Liver function test abnormal [Recovered/Resolved]
  - Pulmonary mass [Recovered/Resolved]
  - Multiple sclerosis relapse [Recovered/Resolved]
  - Discharge [Recovered/Resolved]

NARRATIVE: CASE EVENT DATE: 20200331
